FAERS Safety Report 13484431 (Version 2)
Quarter: 2017Q2

REPORT INFORMATION
  Report Type: Spontaneous
  Country: US (occurrence: US)
  Receive Date: 20170426
  Receipt Date: 20170623
  Transmission Date: 20170830
  Serious: No
  Sender: FDA-Public Use
  Company Number: US-TEVA-759387ACC

PATIENT
  Sex: Male

DRUGS (8)
  1. COPAXONE [Suspect]
     Active Substance: GLATIRAMER ACETATE
     Indication: MULTIPLE SCLEROSIS
     Route: 058
     Dates: start: 20141104
  2. VESICARE [Concomitant]
     Active Substance: SOLIFENACIN SUCCINATE
  3. ASPIRIN. [Concomitant]
     Active Substance: ASPIRIN
  4. FISH OIL [Concomitant]
     Active Substance: FISH OIL
  5. BIOTIN [Concomitant]
     Active Substance: BIOTIN
  6. AMPYRA [Concomitant]
     Active Substance: DALFAMPRIDINE
  7. VITAMIN D [Concomitant]
     Active Substance: CHOLECALCIFEROL
  8. FLOMAX [Concomitant]
     Active Substance: TAMSULOSIN HYDROCHLORIDE

REACTIONS (1)
  - Fall [Not Recovered/Not Resolved]
